FAERS Safety Report 5191091-1 (Version None)
Quarter: 2006Q4

REPORT INFORMATION
  Report Type: 
  Country: None (occurrence: None)
  Receive Date: 20061226
  Receipt Date: 20061129
  Transmission Date: 20070319
  Serious: Yes (Other)
  Sender: FDA-Public Use
  Company Number: PHBS2006JP18685

PATIENT
  Age: 1 Year
  Sex: Female

DRUGS (2)
  1. CYCLOSPORINE [Suspect]
     Indication: JUVENILE ARTHRITIS
     Dosage: UNK, UNK
     Route: 048
  2. METHYLPREDNISOLONE [Suspect]
     Indication: JUVENILE ARTHRITIS
     Dosage: UNK, UNK
     Route: 065

REACTIONS (4)
  - CYTOMEGALOVIRUS INFECTION [None]
  - HISTIOCYTOSIS HAEMATOPHAGIC [None]
  - PYREXIA [None]
  - RASH [None]
